FAERS Safety Report 11395282 (Version 1)
Quarter: 2015Q3

REPORT INFORMATION
  Report Type: Spontaneous
  Country: BE (occurrence: BE)
  Receive Date: 20150819
  Receipt Date: 20150819
  Transmission Date: 20151125
  Serious: Yes (Other)
  Sender: FDA-Public Use
  Company Number: BE-MYLANLABS-2015M1027339

PATIENT

DRUGS (7)
  1. COLISTIN [Interacting]
     Active Substance: COLISTIN
     Indication: CYSTIC FIBROSIS
     Dosage: 3 DOSE OF 2 MIU OVER 30 MIN
     Route: 041
  2. SERETIDE [Concomitant]
     Active Substance: FLUTICASONE FUROATE\SALMETEROL XINAFOATE
     Route: 045
  3. CREON FORTE [Concomitant]
     Route: 048
  4. TOBRAMYCIN. [Suspect]
     Active Substance: TOBRAMYCIN
     Indication: PRODUCT USED FOR UNKNOWN INDICATION
     Route: 042
  5. PIPERACILLIN W/TAZOBACTAM          /01173601/ [Concomitant]
     Route: 042
  6. PULMOZYME [Concomitant]
     Active Substance: DORNASE ALFA
     Route: 065
  7. PAROXETINE [Concomitant]
     Active Substance: PAROXETINE\PAROXETINE HYDROCHLORIDE
     Route: 065

REACTIONS (5)
  - Neurotoxicity [Recovered/Resolved]
  - Somnolence [Recovered/Resolved]
  - Drug interaction [Recovered/Resolved]
  - Paraesthesia [Recovered/Resolved]
  - Headache [Recovered/Resolved]
